FAERS Safety Report 9149304 (Version 5)
Quarter: 2013Q2

REPORT INFORMATION
  Report Type: Spontaneous
  Country: US (occurrence: US)
  Receive Date: 20130308
  Receipt Date: 20130425
  Transmission Date: 20140414
  Serious: Yes (Hospitalization, Other)
  Sender: FDA-Public Use
  Company Number: US-AMGEN-USASP2013015153

PATIENT
  Age: 36 Year
  Sex: Male
  Weight: 77.1 kg

DRUGS (5)
  1. EPOGEN [Suspect]
     Indication: NEPHROGENIC ANAEMIA
     Dosage: 20000 UNIT, 3 TIMES/WK
     Dates: start: 201003
  2. METOPROLOL [Concomitant]
     Dosage: UNK
  3. NIFEDIPINE [Concomitant]
     Dosage: UNK
  4. RENVELA [Concomitant]
     Dosage: UNK
  5. PHOSLO [Concomitant]
     Dosage: UNK

REACTIONS (5)
  - Renal failure chronic [Unknown]
  - Hospitalisation [Recovered/Resolved]
  - Haemoglobin decreased [Not Recovered/Not Resolved]
  - Therapeutic response decreased [Unknown]
  - Haematocrit abnormal [Not Recovered/Not Resolved]
